FAERS Safety Report 9615756 (Version 1)
Quarter: 2013Q4

REPORT INFORMATION
  Report Type: Spontaneous
  Country: US (occurrence: None)
  Receive Date: 20131010
  Receipt Date: 20131010
  Transmission Date: 20140711
  Serious: No
  Sender: FDA-Public Use
  Company Number: None

PATIENT
  Age: 26 Year
  Sex: Female
  Weight: 99.79 kg

DRUGS (1)
  1. HCG [Suspect]
     Indication: WEIGHT CONTROL
     Dosage: GIVEN INTO/UNDER THE SKIN
     Dates: start: 20130927, end: 20131003

REACTIONS (2)
  - Vomiting [None]
  - Malaise [None]
